FAERS Safety Report 4622495-0 (Version None)
Quarter: 2005Q1

REPORT INFORMATION
  Report Type: 
  Country: None (occurrence: None)
  Receive Date: 20050330
  Receipt Date: 20010326
  Transmission Date: 20050727
  Serious: Yes (Disabling)
  Sender: FDA-Public Use
  Company Number: US-ROCHE-257719

PATIENT
  Age: 32 Year
  Sex: Male

DRUGS (1)
  1. LARIAM [Suspect]
     Indication: DRUG USE FOR UNKNOWN INDICATION
     Dosage: SEVEN TABLETS TAKEN IN TOTAL.
     Route: 048
     Dates: start: 20000915, end: 20001023

REACTIONS (28)
  - AGGRESSION [None]
  - AGORAPHOBIA [None]
  - AMNESIA [None]
  - ANXIETY [None]
  - BALANCE DISORDER [None]
  - CONFUSIONAL STATE [None]
  - DEPRESSION [None]
  - DISSOCIATIVE DISORDER [None]
  - DIZZINESS [None]
  - FATIGUE [None]
  - FEELING ABNORMAL [None]
  - HALLUCINATION [None]
  - HEADACHE [None]
  - HEPATOCELLULAR DAMAGE [None]
  - HYPERTENSION [None]
  - IMMUNE SYSTEM DISORDER [None]
  - INSOMNIA [None]
  - MOOD SWINGS [None]
  - MUSCLE TWITCHING [None]
  - MYALGIA [None]
  - NERVOUS SYSTEM DISORDER [None]
  - PANIC ATTACK [None]
  - PARANOIA [None]
  - PSYCHOTIC DISORDER [None]
  - PYREXIA [None]
  - SUICIDAL IDEATION [None]
  - TREMOR [None]
  - VISUAL DISTURBANCE [None]
